FAERS Safety Report 17586539 (Version 1)
Quarter: 2020Q1

REPORT INFORMATION
  Report Type: Spontaneous
  Country: US (occurrence: US)
  Receive Date: 20200326
  Receipt Date: 20200326
  Transmission Date: 20200409
  Serious: Yes (Other)
  Sender: FDA-Public Use
  Company Number: None

PATIENT
  Age: 51 Year
  Sex: Female
  Weight: 68.95 kg

DRUGS (7)
  1. METHOTREXATE 20 MG [Concomitant]
     Dates: start: 20170324
  2. MULTIVITAMIN [Concomitant]
     Active Substance: VITAMINS
     Dates: start: 20150501
  3. SULFASALAZINE. [Concomitant]
     Active Substance: SULFASALAZINE
     Dates: start: 20180426
  4. FOLIC ACID 1 MG [Concomitant]
     Dates: start: 20160823
  5. VITAMIN D 50,000 IU [Concomitant]
     Dates: start: 20150501
  6. HUMIRA [Suspect]
     Active Substance: ADALIMUMAB
     Indication: RHEUMATOID ARTHRITIS
     Dosage: ?          OTHER FREQUENCY:EVERY OTHER WEEK;?
     Route: 058
     Dates: start: 20191010, end: 20200320
  7. HYDROXYCHLOROQUINE 200 MG [Concomitant]
     Active Substance: HYDROXYCHLOROQUINE
     Dates: start: 20150813

REACTIONS (5)
  - Injection site urticaria [None]
  - Injection site mass [None]
  - Urticaria [None]
  - Swelling [None]
  - Mass [None]

NARRATIVE: CASE EVENT DATE: 20200320
